FAERS Safety Report 9262350 (Version 1)
Quarter: 2013Q2

REPORT INFORMATION
  Report Type: Spontaneous
  Country: GB (occurrence: GB)
  Receive Date: 20130430
  Receipt Date: 20130430
  Transmission Date: 20140414
  Serious: Yes (Other)
  Sender: FDA-Public Use
  Company Number: PHHY2013GB026308

PATIENT
  Sex: Male

DRUGS (6)
  1. STALEVO [Suspect]
     Dosage: 1 DF, (100) FOUR TO FIVE TIMES A DAY
     Dates: start: 201204, end: 201210
  2. STALEVO [Suspect]
     Dosage: 1 DF, (125) FIVE TIMES DAILY
     Dates: start: 201210, end: 201302
  3. SINEMET [Concomitant]
     Dosage: 125 MG, TID
     Dates: start: 201104, end: 201204
  4. ROPINIROLE [Concomitant]
     Dosage: 16 MG, UNK
     Dates: start: 20100916
  5. ASPIRIN [Concomitant]
     Dosage: 75 MG, UNK
     Dates: start: 201011
  6. RASAGILINE [Concomitant]
     Dosage: 1 MG, QD
     Dates: start: 201110

REACTIONS (4)
  - Inflammatory bowel disease [Recovered/Resolved]
  - Intestinal ulcer [Recovered/Resolved]
  - Rectal haemorrhage [Unknown]
  - Colitis [Unknown]
